FAERS Safety Report 8609514-1 (Version None)
Quarter: 2012Q3

REPORT INFORMATION
  Report Type: 
  Country: None (occurrence: None)
  Receive Date: 20120821
  Receipt Date: 20120816
  Transmission Date: 20120928
  Serious: Yes (Death, Life-Threatening, Hospitalization)
  Sender: FDA-Public Use
  Company Number: US-PFIZER INC-2011245366

PATIENT
  Age: 67 Year
  Sex: Male
  Weight: 89 kg

DRUGS (14)
  1. LEVOTHYROXINE SODIUM [Suspect]
     Indication: HYPOTHYROIDISM
     Dosage: 50 UG, 1X/DAY,
     Route: 048
     Dates: end: 20111105
  2. ZETIA [Suspect]
     Indication: HYPERLIPIDAEMIA
     Dosage: 10 MG, 1X/DAY, TABLET
     Route: 048
     Dates: end: 20111105
  3. VANCOMYCIN HCL [Suspect]
     Dosage: 1750 MG, ONCE, IVPB
     Route: 042
     Dates: start: 20111015, end: 20111015
  4. ASPIRIN [Suspect]
     Indication: CARDIOVASCULAR EVENT PROPHYLAXIS
     Dosage: 80 MG, DAILY, TABLET
     Route: 048
     Dates: end: 20111105
  5. COREG [Suspect]
     Indication: HYPERTENSION
     Dosage: 3.125 MG, 1X/DAY
     Route: 048
     Dates: end: 20111010
  6. LEVOFLOXACIN [Suspect]
     Dosage: 750 MG/ D5W 150 ML Q24H, IVPB
     Route: 042
     Dates: start: 20111015, end: 20111018
  7. POTASSIUM CHLORIDE [Suspect]
     Indication: SUPPLEMENTATION THERAPY
     Dosage: 20 MEQ, 1X/DAY, TABLET
     Route: 048
     Dates: end: 20111105
  8. ZOCOR [Suspect]
     Indication: HYPERLIPIDAEMIA
     Dosage: 40 MG, 1X/DAY, TABLET
     Route: 048
     Dates: end: 20111105
  9. LASIX [Suspect]
     Indication: HYPERTENSION
     Dosage: UNK, TABLET
     Route: 048
     Dates: end: 20111105
  10. FLUZONE [Suspect]
     Indication: INFLUENZA IMMUNISATION
     Dosage: 1 DF, SINGLE, INJECTION
     Route: 058
     Dates: start: 20111005, end: 20111005
  11. CRIZOTINIB [Suspect]
     Indication: NON-SMALL CELL LUNG CANCER
     Dosage: 250 MG, 2X/DAY
     Route: 048
     Dates: start: 20110603, end: 20111024
  12. MEROPENEM [Suspect]
     Dosage: 1 GRAM IN 50 ML NS Q8H, IVPB
     Route: 042
     Dates: start: 20111015, end: 20111019
  13. BENZONATATE [Suspect]
     Indication: COUGH
     Dosage: 100 MG, AS NEEDED
     Route: 048
     Dates: end: 20111105
  14. VANCOMYCIN HCL [Suspect]
     Dosage: 1500 MG, 2X/DAY, IVPB
     Route: 042
     Dates: start: 20111015, end: 20111016

REACTIONS (6)
  - DISEASE PROGRESSION [None]
  - ILEUS [None]
  - ORTHOSTATIC HYPOTENSION [None]
  - NON-SMALL CELL LUNG CANCER [None]
  - FAILURE TO THRIVE [None]
  - CONSTIPATION [None]
